FAERS Safety Report 7554626-7 (Version None)
Quarter: 2011Q2

REPORT INFORMATION
  Report Type: 
  Country: None (occurrence: None)
  Receive Date: 20110617
  Receipt Date: 20110607
  Transmission Date: 20111010
  Serious: Yes (Hospitalization, Other)
  Sender: FDA-Public Use
  Company Number: US-ROCHE-727618

PATIENT
  Sex: Male
  Weight: 74.8 kg

DRUGS (6)
  1. AMOXICILLIN [Concomitant]
  2. MINOCYCLINE HCL [Concomitant]
  3. DOXYCYCLINE [Concomitant]
     Dates: start: 20020916
  4. DOXYCYCLINE [Concomitant]
     Dates: start: 20010905
  5. ACCUTANE [Suspect]
     Indication: ACNE
     Route: 065
     Dates: start: 20001201, end: 20010501
  6. ACCUTANE [Suspect]
     Route: 065
     Dates: start: 20011101, end: 20020401

REACTIONS (10)
  - PERIRECTAL ABSCESS [None]
  - CROHN'S DISEASE [None]
  - INTESTINAL OBSTRUCTION [None]
  - ANAL FISSURE [None]
  - BLOOD TRIGLYCERIDES INCREASED [None]
  - INFLAMMATORY BOWEL DISEASE [None]
  - COLITIS ULCERATIVE [None]
  - INTESTINAL HAEMORRHAGE [None]
  - BLOOD CHOLESTEROL INCREASED [None]
  - BLOOD ALKALINE PHOSPHATASE INCREASED [None]
